FAERS Safety Report 7090230-5 (Version None)
Quarter: 2010Q4

REPORT INFORMATION
  Report Type: 
  Country: None (occurrence: None)
  Receive Date: 20101104
  Receipt Date: 20101104
  Transmission Date: 20110411
  Serious: Yes (Hospitalization)
  Sender: FDA-Public Use
  Company Number: None

PATIENT
  Sex: Male
  Weight: 91.5 kg

DRUGS (2)
  1. BEVACIZUMAB 15MG/KG LAST DOSE 10/26/2010 [Suspect]
     Indication: PROSTATE CANCER
     Dosage: 15 MG/KG D1 Q 21 DAYS IV
     Route: 042
     Dates: start: 20101005, end: 20101026
  2. DOCETAXEL [Suspect]
     Indication: PROSTATE CANCER
     Dosage: 75 MG/M2 D1 Q 21 DAYS IV
     Route: 042
     Dates: start: 20101005, end: 20101026

REACTIONS (4)
  - ABDOMINAL PAIN [None]
  - NAUSEA [None]
  - SMALL INTESTINAL OBSTRUCTION [None]
  - VOMITING [None]
